FAERS Safety Report 18682487 (Version 1)
Quarter: 2020Q4

REPORT INFORMATION
  Report Type: Spontaneous
  Country: US (occurrence: US)
  Receive Date: 20201229
  Receipt Date: 20201229
  Transmission Date: 20210114
  Serious: No
  Sender: FDA-Public Use
  Company Number: US-DRREDDYS-USA/USA/20/0130225

PATIENT
  Age: 15 Year
  Sex: Female

DRUGS (1)
  1. ZENATANE [Suspect]
     Active Substance: ISOTRETINOIN
     Indication: PRODUCT USED FOR UNKNOWN INDICATION
     Dosage: RMA ISSUE DATE : 5/29/2020 3:05:06 PM, 7/13/2020 1:12:35 PM, 8/31/2020 12:44:01 PM, 10/1/2020 12:20:
     Route: 048

REACTIONS (2)
  - Menstrual disorder [Unknown]
  - Hormone level abnormal [Unknown]
